FAERS Safety Report 7551051-X (Version None)
Quarter: 2011Q2

REPORT INFORMATION
  Report Type: 
  Country: None (occurrence: None)
  Receive Date: 20110616
  Receipt Date: 20110107
  Transmission Date: 20111010
  Serious: Yes (Hospitalization)
  Sender: FDA-Public Use
  Company Number: US-BAYER-201036630NA

PATIENT
  Age: 30 Year
  Sex: Female
  Weight: 61.224 kg

DRUGS (7)
  1. YAZ [Suspect]
     Indication: MIGRAINE
     Dosage: UNK
     Dates: start: 20050101, end: 20071201
  2. YAZ [Suspect]
     Dosage: UNK
     Route: 048
     Dates: start: 20020101, end: 20070101
  3. DEMEROL [Concomitant]
     Dosage: UNK
     Dates: start: 20070101
  4. YASMIN [Suspect]
     Indication: PRODUCT USED FOR UNKNOWN INDICATION
     Dosage: UNK UNK, UNK
     Route: 048
     Dates: start: 20050101, end: 20071227
  5. LUPRON [Concomitant]
     Indication: CONTRACEPTION
  6. IBUPROFEN [Concomitant]
  7. CLARITIN [Concomitant]

REACTIONS (8)
  - DEEP VEIN THROMBOSIS [None]
  - PALPITATIONS [None]
  - PAIN [None]
  - POST THROMBOTIC SYNDROME [None]
  - PULMONARY EMBOLISM [None]
  - ENDOMETRIOSIS [None]
  - TACHYCARDIA [None]
  - OVARIAN CYST [None]
